FAERS Safety Report 25482894 (Version 3)
Quarter: 2025Q3

REPORT INFORMATION
  Report Type: Spontaneous
  Country: US (occurrence: US)
  Receive Date: 20250626
  Receipt Date: 20250801
  Transmission Date: 20251020
  Serious: No
  Sender: PFIZER
  Company Number: US-PFIZER INC-202500100693

PATIENT
  Age: 62 Year
  Sex: Male

DRUGS (1)
  1. ADCETRIS [Suspect]
     Active Substance: BRENTUXIMAB VEDOTIN
     Indication: Anaplastic large cell lymphoma T- and null-cell types
     Dosage: 100MG IV EVERY 3 WEEKS/ 21 DAYS
     Route: 042

REACTIONS (3)
  - Weight increased [Unknown]
  - Weight decreased [Unknown]
  - Off label use [Unknown]
